FAERS Safety Report 9096861 (Version 1)
Quarter: 2013Q1

REPORT INFORMATION
  Report Type: Spontaneous
  Country: US (occurrence: None)
  Receive Date: 20130125
  Receipt Date: 20130125
  Transmission Date: 20140127
  Serious: Yes (Death)
  Sender: FDA-Public Use
  Company Number: 2013-0285

PATIENT
  Age: 62 Year
  Sex: Male

DRUGS (1)
  1. SOMATULINE [Suspect]
     Indication: ACROMEGALY
     Dosage: 120 MG 9120 MG, 1 IN 8 WK), UNKNOWN
     Dates: start: 201201

REACTIONS (1)
  - Death [None]
